FAERS Safety Report 18774740 (Version 1)
Quarter: 2021Q1

REPORT INFORMATION
  Report Type: Other
  Country: JP (occurrence: JP)
  Receive Date: 20210122
  Receipt Date: 20210122
  Transmission Date: 20210419
  Serious: Yes (Other)
  Sender: FDA-Public Use
  Company Number: JP-ROCHE-2691326

PATIENT

DRUGS (2)
  1. OSIMERTINIB. [Suspect]
     Active Substance: OSIMERTINIB
     Indication: LUNG ADENOCARCINOMA
     Route: 048
  2. BEVACIZUMAB. [Suspect]
     Active Substance: BEVACIZUMAB
     Indication: LUNG ADENOCARCINOMA
     Route: 065

REACTIONS (14)
  - Neutrophil count decreased [Unknown]
  - Anaemia [Unknown]
  - Hypertension [Unknown]
  - Interstitial lung disease [Unknown]
  - Infection [Unknown]
  - Blood albumin decreased [Unknown]
  - Diarrhoea [Unknown]
  - Aspartate aminotransferase increased [Unknown]
  - Hyperkalaemia [Unknown]
  - Rash [Unknown]
  - Proteinuria [Unknown]
  - Decreased appetite [Unknown]
  - White blood cell count decreased [Unknown]
  - Pneumothorax [Unknown]
